FAERS Safety Report 18717268 (Version 1)
Quarter: 2021Q1

REPORT INFORMATION
  Report Type: Spontaneous
  Country: CN (occurrence: CN)
  Receive Date: 20210108
  Receipt Date: 20210108
  Transmission Date: 20210419
  Serious: Yes (Other)
  Sender: FDA-Public Use
  Company Number: CN-PFIZER INC-2021008349

PATIENT
  Age: 72 Year
  Sex: Male

DRUGS (1)
  1. SERTRALINE HCL [Suspect]
     Active Substance: SERTRALINE HYDROCHLORIDE
     Indication: SOMATIC SYMPTOM DISORDER
     Dosage: 25 MG, 1X/DAY
     Route: 048
     Dates: start: 20201217, end: 20201218

REACTIONS (2)
  - Paraparesis [Unknown]
  - Malaise [Unknown]

NARRATIVE: CASE EVENT DATE: 20201218
